FAERS Safety Report 5935526-2 (Version None)
Quarter: 2008Q4

REPORT INFORMATION
  Report Type: 
  Country: None (occurrence: None)
  Receive Date: 20081030
  Receipt Date: 20081027
  Transmission Date: 20090506
  Serious: Yes (Hospitalization)
  Sender: FDA-Public Use
  Company Number: JP-ASTRAZENECA-2008AP07544

PATIENT
  Age: 62 Year
  Sex: Female
  Weight: 49 kg

DRUGS (8)
  1. IRESSA [Suspect]
     Indication: NON-SMALL CELL LUNG CANCER
     Route: 048
     Dates: start: 20080909, end: 20080924
  2. IRESSA [Suspect]
     Route: 048
     Dates: start: 20080925
  3. HYPEN [Concomitant]
     Indication: CANCER PAIN
     Route: 048
     Dates: start: 20080618
  4. OXYCONTIN [Concomitant]
     Indication: CANCER PAIN
     Route: 048
     Dates: start: 20080620, end: 20080912
  5. OXYCONTIN [Concomitant]
     Route: 048
     Dates: start: 20080913
  6. MAGMITT [Concomitant]
     Indication: CONSTIPATION
     Route: 048
     Dates: start: 20080620
  7. RENIVACE [Concomitant]
     Indication: HYPERTENSION
     Route: 048
     Dates: start: 20080702
  8. GABAPEN [Concomitant]
     Indication: CANCER PAIN
     Route: 048
     Dates: start: 20080724

REACTIONS (2)
  - LEUKOPENIA [None]
  - NEUTROPENIA [None]
